FAERS Safety Report 5832535-9 (Version None)
Quarter: 2008Q3

REPORT INFORMATION
  Report Type: 
  Country: None (occurrence: None)
  Receive Date: 20080731
  Receipt Date: 20080722
  Transmission Date: 20090109
  Serious: Yes (Life-Threatening, Other)
  Sender: FDA-Public Use
  Company Number: 2008US001476

PATIENT
  Age: 49 Year
  Sex: Male

DRUGS (13)
  1. AMBISOME [Suspect]
     Indication: ENCEPHALITIS
     Dosage: 300 MG, UID/QD, PARENTERAL
     Route: 051
     Dates: start: 20080415, end: 20080418
  2. ZOVIRAX [Concomitant]
  3. GLUCOSE (GLUCOSE) [Concomitant]
  4. GLYCEOL (FRUCTOSE, GLYCEROL) [Concomitant]
  5. SOLITA-T3 (SODIUM LACTATE, SODIUM CHLORIDE, POTASSIUM CHLORIDE) [Concomitant]
  6. VITAMEDIN (BENFOTIAMINE) [Concomitant]
  7. ROCEPHIN [Concomitant]
  8. MAGNESIUM SULFATE [Concomitant]
  9. POTASSIUM CHLORIDE [Concomitant]
  10. CALCICOL (CALCIUM GLUCONATE) [Concomitant]
  11. NEOLAMIN 3B (THIAMINE DISULFIDE) [Concomitant]
  12. SODIUM CHLORIDE 0.9% [Concomitant]
  13. ALINAMIN-F (FURSULTIAMINE HYDROCHLORIDE) [Concomitant]

REACTIONS (3)
  - ALTERED STATE OF CONSCIOUSNESS [None]
  - ARRHYTHMIA [None]
  - HYPOKALAEMIA [None]
